FAERS Safety Report 18145328 (Version 1)
Quarter: 2020Q3

REPORT INFORMATION
  Report Type: Spontaneous
  Country: AU (occurrence: AU)
  Receive Date: 20200813
  Receipt Date: 20200813
  Transmission Date: 20201103
  Serious: Yes (Hospitalization, Other)
  Sender: FDA-Public Use
  Company Number: AU-SA-2020SA104935

PATIENT

DRUGS (19)
  1. PARACETAMOL [Suspect]
     Active Substance: ACETAMINOPHEN
     Indication: ANALGESIC THERAPY
  2. DICLOXACILLIN [Suspect]
     Active Substance: DICLOXACILLIN
     Indication: ENDOCARDITIS PROPHYLAXIS
     Dosage: 1 G, BID
     Route: 048
     Dates: start: 20180525, end: 20190214
  3. PANTOPRAZOLE [Concomitant]
     Active Substance: PANTOPRAZOLE
     Route: 065
  4. DICLOXACILLIN [Suspect]
     Active Substance: DICLOXACILLIN
     Indication: PYELONEPHRITIS
  5. DICLOXACILLIN [Suspect]
     Active Substance: DICLOXACILLIN
     Indication: STAPHYLOCOCCAL BACTERAEMIA
  6. APIXABAN [Concomitant]
     Active Substance: APIXABAN
     Route: 065
  7. SULFASALAZINE. [Concomitant]
     Active Substance: SULFASALAZINE
     Route: 065
  8. DIGOXIN. [Concomitant]
     Active Substance: DIGOXIN
     Route: 065
  9. DICLOXACILLIN [Suspect]
     Active Substance: DICLOXACILLIN
     Indication: ENDOCARDITIS
  10. IRBESARTAN. [Suspect]
     Active Substance: IRBESARTAN
     Route: 065
  11. PRAMIPEXOLE. [Concomitant]
     Active Substance: PRAMIPEXOLE
     Route: 065
  12. INSULIN [Concomitant]
     Active Substance: INSULIN NOS
     Dosage: MIXED
     Route: 065
  13. PARACETAMOL [Suspect]
     Active Substance: ACETAMINOPHEN
     Indication: ENDOCARDITIS
     Dosage: 1 G, QID
     Route: 065
  14. PARACETAMOL [Suspect]
     Active Substance: ACETAMINOPHEN
     Indication: RHEUMATOID ARTHRITIS
  15. BISOPROLOL [Concomitant]
     Active Substance: BISOPROLOL
     Route: 065
  16. ATORVASTATIN [Concomitant]
     Active Substance: ATORVASTATIN
  17. CHOLECALCIFEROL [Concomitant]
     Active Substance: CHOLECALCIFEROL
     Route: 065
  18. DICLOXACILLIN [Suspect]
     Active Substance: DICLOXACILLIN
     Indication: NEPHROLITHIASIS
  19. DOMPERIDONE [Concomitant]
     Active Substance: DOMPERIDONE
     Route: 065

REACTIONS (23)
  - Productive cough [Recovered/Resolved]
  - Decreased appetite [Recovered/Resolved]
  - Tachypnoea [Recovered/Resolved]
  - Hypoalbuminaemia [Recovered/Resolved]
  - Pyroglutamate increased [Recovered/Resolved]
  - Pyrexia [Recovered/Resolved]
  - Acute kidney injury [Recovered/Resolved]
  - Polyuria [Recovering/Resolving]
  - Urine output decreased [Recovered/Resolved]
  - Pulmonary oedema [Recovered/Resolved]
  - Lethargy [Recovered/Resolved]
  - Splenomegaly [Recovered/Resolved]
  - Lower respiratory tract infection [Recovered/Resolved]
  - Nephropathy toxic [Recovered/Resolved]
  - Hyperglycaemia [Recovered/Resolved]
  - Metabolic acidosis [Recovered/Resolved]
  - Sepsis [Recovered/Resolved]
  - Rales [Recovered/Resolved]
  - Fall [Unknown]
  - Anaemia [Recovered/Resolved]
  - Candida infection [Recovered/Resolved]
  - Urinary tract infection [Recovered/Resolved]
  - Haemoglobin decreased [Recovered/Resolved]

NARRATIVE: CASE EVENT DATE: 20190210
